FAERS Safety Report 7328344-4 (Version None)
Quarter: 2011Q1

REPORT INFORMATION
  Report Type: 
  Country: None (occurrence: None)
  Receive Date: 20110303
  Receipt Date: 20110228
  Transmission Date: 20110831
  Serious: Yes (Hospitalization)
  Sender: FDA-Public Use
  Company Number: DE-AMGEN-DEUSP2011009608

PATIENT
  Age: 87 Year
  Sex: Female
  Weight: 55 kg

DRUGS (2)
  1. PROLIA [Suspect]
     Indication: PRODUCT USED FOR UNKNOWN INDICATION
     Dosage: UNK UNK, ONE TIME DOSE
     Route: 058
     Dates: start: 20100826
  2. NITROFURANTOIN [Suspect]
     Indication: URINARY TRACT INFECTION
     Dosage: UNK UNK, BID
     Route: 048
     Dates: start: 20100819, end: 20100830

REACTIONS (8)
  - URINARY INCONTINENCE [None]
  - PAIN [None]
  - HEADACHE [None]
  - URINARY TRACT INFECTION [None]
  - FAECAL INCONTINENCE [None]
  - HYPERTENSION [None]
  - JOINT STIFFNESS [None]
  - NAUSEA [None]
